FAERS Safety Report 18575208 (Version 6)
Quarter: 2022Q2

REPORT INFORMATION
  Report Type: Spontaneous
  Country: US (occurrence: US)
  Receive Date: 20201203
  Receipt Date: 20220503
  Transmission Date: 20220720
  Serious: No
  Sender: FDA-Public Use
  Company Number: US-PFIZER INC-2020475491

PATIENT
  Age: 64 Year
  Sex: Male

DRUGS (2)
  1. XELJANZ XR [Suspect]
     Active Substance: TOFACITINIB CITRATE
     Indication: Rheumatoid arthritis
     Dosage: 11 MG, 1X/DAY
     Route: 048
     Dates: start: 20201022
  2. METHOTREXATE [Concomitant]
     Active Substance: METHOTREXATE
     Dosage: 8 DF, WEEKLY (8 TABLETS ONCE WEEKLY)

REACTIONS (13)
  - Product dose omission in error [Unknown]
  - Therapeutic response unexpected [Unknown]
  - Blood cholesterol increased [Recovering/Resolving]
  - Peripheral swelling [Not Recovered/Not Resolved]
  - Muscle strain [Recovering/Resolving]
  - Condition aggravated [Recovering/Resolving]
  - Gait inability [Recovered/Resolved]
  - Pre-existing condition improved [Unknown]
  - Arthritis [Unknown]
  - Joint swelling [Unknown]
  - Arthralgia [Unknown]
  - Joint swelling [Not Recovered/Not Resolved]
  - Joint swelling [Unknown]

NARRATIVE: CASE EVENT DATE: 20200101
